FAERS Safety Report 25462703 (Version 2)
Quarter: 2025Q3

REPORT INFORMATION
  Report Type: Spontaneous
  Country: EU (occurrence: EU)
  Receive Date: 20250620
  Receipt Date: 20250714
  Transmission Date: 20251021
  Serious: Yes (Hospitalization, Other)
  Sender: MYLAN
  Company Number: EU-ROCHE-10000296437

PATIENT
  Age: 67 Year

DRUGS (48)
  1. DOXORUBICIN [Suspect]
     Active Substance: DOXORUBICIN
     Indication: Mantle cell lymphoma
  2. DOXORUBICIN [Suspect]
     Active Substance: DOXORUBICIN
     Route: 065
  3. DOXORUBICIN [Suspect]
     Active Substance: DOXORUBICIN
     Route: 065
  4. DOXORUBICIN [Suspect]
     Active Substance: DOXORUBICIN
  5. CISPLATIN [Suspect]
     Active Substance: CISPLATIN
     Indication: Mantle cell lymphoma
  6. CISPLATIN [Suspect]
     Active Substance: CISPLATIN
     Route: 065
  7. CISPLATIN [Suspect]
     Active Substance: CISPLATIN
     Route: 065
  8. CISPLATIN [Suspect]
     Active Substance: CISPLATIN
  9. RITUXIMAB [Suspect]
     Active Substance: RITUXIMAB
     Indication: Mantle cell lymphoma
  10. RITUXIMAB [Suspect]
     Active Substance: RITUXIMAB
     Route: 065
  11. RITUXIMAB [Suspect]
     Active Substance: RITUXIMAB
     Route: 065
  12. RITUXIMAB [Suspect]
     Active Substance: RITUXIMAB
  13. CYCLOPHOSPHAMIDE [Suspect]
     Active Substance: CYCLOPHOSPHAMIDE
     Indication: Mantle cell lymphoma
  14. CYCLOPHOSPHAMIDE [Suspect]
     Active Substance: CYCLOPHOSPHAMIDE
     Route: 065
  15. CYCLOPHOSPHAMIDE [Suspect]
     Active Substance: CYCLOPHOSPHAMIDE
     Route: 065
  16. CYCLOPHOSPHAMIDE [Suspect]
     Active Substance: CYCLOPHOSPHAMIDE
  17. VINCRISTINE [Suspect]
     Active Substance: VINCRISTINE
     Indication: Mantle cell lymphoma
  18. VINCRISTINE [Suspect]
     Active Substance: VINCRISTINE
     Route: 065
  19. VINCRISTINE [Suspect]
     Active Substance: VINCRISTINE
     Route: 065
  20. VINCRISTINE [Suspect]
     Active Substance: VINCRISTINE
  21. PREDNISONE [Suspect]
     Active Substance: PREDNISONE
     Indication: Mantle cell lymphoma
  22. PREDNISONE [Suspect]
     Active Substance: PREDNISONE
     Route: 065
  23. PREDNISONE [Suspect]
     Active Substance: PREDNISONE
     Route: 065
  24. PREDNISONE [Suspect]
     Active Substance: PREDNISONE
  25. DEXAMETHASONE [Suspect]
     Active Substance: DEXAMETHASONE
     Indication: Mantle cell lymphoma
  26. DEXAMETHASONE [Suspect]
     Active Substance: DEXAMETHASONE
     Route: 065
  27. DEXAMETHASONE [Suspect]
     Active Substance: DEXAMETHASONE
     Route: 065
  28. DEXAMETHASONE [Suspect]
     Active Substance: DEXAMETHASONE
  29. CYTARABINE [Suspect]
     Active Substance: CYTARABINE
     Indication: Mantle cell lymphoma
  30. CYTARABINE [Suspect]
     Active Substance: CYTARABINE
     Route: 065
  31. CYTARABINE [Suspect]
     Active Substance: CYTARABINE
     Route: 065
  32. CYTARABINE [Suspect]
     Active Substance: CYTARABINE
  33. BENDAMUSTINE [Suspect]
     Active Substance: BENDAMUSTINE
     Indication: Mantle cell lymphoma
  34. BENDAMUSTINE [Suspect]
     Active Substance: BENDAMUSTINE
     Route: 065
  35. BENDAMUSTINE [Suspect]
     Active Substance: BENDAMUSTINE
     Route: 065
  36. BENDAMUSTINE [Suspect]
     Active Substance: BENDAMUSTINE
  37. IBRUTINIB [Suspect]
     Active Substance: IBRUTINIB
     Indication: Mantle cell lymphoma
  38. IBRUTINIB [Suspect]
     Active Substance: IBRUTINIB
     Route: 065
  39. IBRUTINIB [Suspect]
     Active Substance: IBRUTINIB
     Route: 065
  40. IBRUTINIB [Suspect]
     Active Substance: IBRUTINIB
  41. CYCLOPHOSPHAMIDE\DOXORUBICIN\ETOPOSIDE\PREDNISONE\VINCRISTINE [Suspect]
     Active Substance: CYCLOPHOSPHAMIDE\DOXORUBICIN\ETOPOSIDE\PREDNISONE\VINCRISTINE
     Indication: Mantle cell lymphoma
  42. CYCLOPHOSPHAMIDE\DOXORUBICIN\ETOPOSIDE\PREDNISONE\VINCRISTINE [Suspect]
     Active Substance: CYCLOPHOSPHAMIDE\DOXORUBICIN\ETOPOSIDE\PREDNISONE\VINCRISTINE
     Route: 065
  43. CYCLOPHOSPHAMIDE\DOXORUBICIN\ETOPOSIDE\PREDNISONE\VINCRISTINE [Suspect]
     Active Substance: CYCLOPHOSPHAMIDE\DOXORUBICIN\ETOPOSIDE\PREDNISONE\VINCRISTINE
     Route: 065
  44. CYCLOPHOSPHAMIDE\DOXORUBICIN\ETOPOSIDE\PREDNISONE\VINCRISTINE [Suspect]
     Active Substance: CYCLOPHOSPHAMIDE\DOXORUBICIN\ETOPOSIDE\PREDNISONE\VINCRISTINE
  45. CISPLATIN\CYTARABINE\DEXAMETHASONE [Suspect]
     Active Substance: CISPLATIN\CYTARABINE\DEXAMETHASONE
     Indication: Mantle cell lymphoma
  46. CISPLATIN\CYTARABINE\DEXAMETHASONE [Suspect]
     Active Substance: CISPLATIN\CYTARABINE\DEXAMETHASONE
     Route: 065
  47. CISPLATIN\CYTARABINE\DEXAMETHASONE [Suspect]
     Active Substance: CISPLATIN\CYTARABINE\DEXAMETHASONE
     Route: 065
  48. CISPLATIN\CYTARABINE\DEXAMETHASONE [Suspect]
     Active Substance: CISPLATIN\CYTARABINE\DEXAMETHASONE

REACTIONS (3)
  - Fungal infection [Unknown]
  - Aspergillus infection [Recovering/Resolving]
  - Intentional product use issue [Unknown]
